FAERS Safety Report 16930262 (Version 1)
Quarter: 2019Q4

REPORT INFORMATION
  Report Type: Spontaneous
  Country: US (occurrence: US)
  Receive Date: 20191017
  Receipt Date: 20191017
  Transmission Date: 20200122
  Serious: Yes (Other)
  Sender: FDA-Public Use
  Company Number: US-JNJFOC-20191014943

PATIENT
  Sex: Male
  Weight: 96.7 kg

DRUGS (3)
  1. OMEPRAZOLE. [Concomitant]
     Active Substance: OMEPRAZOLE
     Indication: ABDOMINAL DISCOMFORT
     Route: 065
     Dates: start: 201909
  2. ESCITALOPRAM [Concomitant]
     Active Substance: ESCITALOPRAM OXALATE
     Indication: ANXIETY
     Route: 065
     Dates: start: 1991
  3. RISPERDAL [Suspect]
     Active Substance: RISPERIDONE
     Indication: MOOD SWINGS
     Route: 048

REACTIONS (2)
  - Breast enlargement [Unknown]
  - Neoplasm malignant [Unknown]
